FAERS Safety Report 7238852-2 (Version None)
Quarter: 2011Q1

REPORT INFORMATION
  Report Type: 
  Country: None (occurrence: None)
  Receive Date: 20110119
  Receipt Date: 20110119
  Transmission Date: 20110831
  Serious: Yes (Hospitalization)
  Sender: FDA-Public Use
  Company Number: None

PATIENT
  Sex: Female
  Weight: 76 kg

DRUGS (7)
  1. VINCRISTINE SULFATE [Suspect]
  2. DOXORUBICIN HCL [Suspect]
  3. METHOTREXATE 45 MG [Suspect]
  4. THIOGUANINE [Suspect]
  5. CYTARABINE [Suspect]
  6. CYCLOPHOSPHAMIDE [Suspect]
  7. PEG-L ASPARAGMASE (K-H) 8825 UNIT [Suspect]

REACTIONS (2)
  - FEBRILE NEUTROPENIA [None]
  - CLOSTRIDIUM DIFFICILE COLITIS [None]
